FAERS Safety Report 14769524 (Version 1)
Quarter: 2018Q2

REPORT INFORMATION
  Report Type: Other
  Country: NO (occurrence: NO)
  Receive Date: 20180417
  Receipt Date: 20180417
  Transmission Date: 20180711
  Serious: Yes (Hospitalization)
  Sender: FDA-Public Use
  Company Number: NO-CELLTRION INC.-2018NO019185

PATIENT

DRUGS (3)
  1. REMSIMA [Suspect]
     Active Substance: INFLIXIMAB
     Indication: CROHN^S DISEASE
     Dosage: UNK,
     Route: 042
     Dates: start: 20180228, end: 20180228
  2. REMSIMA [Suspect]
     Active Substance: INFLIXIMAB
     Dosage: UNK,
     Route: 042
     Dates: start: 20180314, end: 20180314
  3. IMUREL                             /00001501/ [Concomitant]
     Active Substance: AZATHIOPRINE SODIUM
     Indication: CROHN^S DISEASE
     Dosage: 200 MG, DAILY
     Route: 048
     Dates: start: 20180228

REACTIONS (4)
  - C-reactive protein increased [Recovered/Resolved]
  - Serum sickness-like reaction [Recovered/Resolved]
  - Arthralgia [Recovered/Resolved]
  - Infusion related reaction [Recovered/Resolved]

NARRATIVE: CASE EVENT DATE: 20180314
